FAERS Safety Report 4421766-0 (Version None)
Quarter: 2004Q3

REPORT INFORMATION
  Report Type: 
  Country: None (occurrence: None)
  Receive Date: 20040806
  Receipt Date: 20040720
  Transmission Date: 20050211
  Serious: Yes (Other)
  Sender: FDA-Public Use
  Company Number: USA040773147

PATIENT
  Age: 7 Year
  Sex: Male
  Weight: 17 kg

DRUGS (3)
  1. STRATTERA [Suspect]
     Indication: ATTENTION DEFICIT/HYPERACTIVITY DISORDER
     Dosage: 25 MG DAY
     Dates: start: 20040130, end: 20040708
  2. ZYPREXA [Suspect]
     Indication: ABNORMAL BEHAVIOUR
     Dosage: 5 MG DAY
  3. METADATE CD [Concomitant]

REACTIONS (6)
  - EYE DISORDER [None]
  - HEADACHE [None]
  - MYDRIASIS [None]
  - OPTIC ATROPHY [None]
  - PHOTOSENSITIVITY REACTION [None]
  - TARDIVE DYSKINESIA [None]
